FAERS Safety Report 19743833 (Version 1)
Quarter: 2021Q3

REPORT INFORMATION
  Report Type: Spontaneous
  Country: US (occurrence: US)
  Receive Date: 20210823
  Receipt Date: 20210823
  Transmission Date: 20211014
  Serious: Yes (Hospitalization)
  Sender: FDA-Public Use
  Company Number: None

PATIENT
  Sex: Female

DRUGS (1)
  1. TALTZ [Suspect]
     Active Substance: IXEKIZUMAB
     Indication: PSORIATIC ARTHROPATHY
     Dosage: INJECT 2 PENS SUBCUTANEOUSLY AT WEEK 0, THEN ONE PEN AT WEEKS 2, 4, 6, B, 10, AND 1.2. THEN INJECT EVERY4 WEEKS?
     Route: 058
     Dates: start: 202106

REACTIONS (1)
  - Injection site swelling [None]
